FAERS Safety Report 18645796 (Version 4)
Quarter: 2021Q1

REPORT INFORMATION
  Report Type: Spontaneous
  Country: AR (occurrence: AR)
  Receive Date: 20201221
  Receipt Date: 20210111
  Transmission Date: 20210419
  Serious: Yes (Other)
  Sender: FDA-Public Use
  Company Number: AR-B.I. PHARMACEUTICALS,INC./RIDGEFIELD-2020-BI-070057

PATIENT
  Age: 71 Year
  Sex: Male

DRUGS (2)
  1. OFEV [Suspect]
     Active Substance: NINTEDANIB
     Indication: IDIOPATHIC PULMONARY FIBROSIS
     Dosage: CAPSULES. 150MG/12 HOURS
     Route: 048
     Dates: start: 20191113, end: 20201216
  2. OFEV [Suspect]
     Active Substance: NINTEDANIB
     Indication: DISEASE PROGRESSION
     Dosage: 100MG BID
     Route: 048
     Dates: start: 20210106

REACTIONS (6)
  - Pancreatic failure [Not Recovered/Not Resolved]
  - Nausea [Unknown]
  - Vomiting [Unknown]
  - Haematocrit abnormal [Unknown]
  - Diarrhoea [Not Recovered/Not Resolved]
  - Weight decreased [Not Recovered/Not Resolved]

NARRATIVE: CASE EVENT DATE: 20200304
